FAERS Safety Report 5830503-4 (Version None)
Quarter: 2008Q3

REPORT INFORMATION
  Report Type: 
  Country: None (occurrence: None)
  Receive Date: 20080801
  Receipt Date: 20080724
  Transmission Date: 20090109
  Serious: Yes (Hospitalization, Other)
  Sender: FDA-Public Use
  Company Number: BR-PFIZER INC-055-0981-M0000201

PATIENT
  Sex: Female

DRUGS (7)
  1. CITALOR [Suspect]
     Indication: DYSLIPIDAEMIA
     Route: 048
  2. ATENOLOL [Concomitant]
     Dates: start: 19930101
  3. MONOCORDIL [Concomitant]
  4. NORVASC [Concomitant]
  5. SUSTRATE [Concomitant]
  6. VYTORIN [Concomitant]
  7. AAS [Concomitant]

REACTIONS (5)
  - ARTERIAL OCCLUSIVE DISEASE [None]
  - CORONARY ARTERY BYPASS [None]
  - CORONARY ARTERY OCCLUSION [None]
  - DEAFNESS [None]
  - OSTEOARTHRITIS [None]
